FAERS Safety Report 21399739 (Version 1)
Quarter: 2022Q4

REPORT INFORMATION
  Report Type: Spontaneous
  Country: FR (occurrence: FR)
  Receive Date: 20221001
  Receipt Date: 20221001
  Transmission Date: 20230113
  Serious: Yes (Hospitalization)
  Sender: FDA-Public Use
  Company Number: None

PATIENT
  Age: 35 Year
  Sex: Male
  Weight: 80 kg

DRUGS (10)
  1. PAROXETINE [Suspect]
     Active Substance: PAROXETINE
     Indication: Mixed anxiety and depressive disorder
     Dosage: UNIT DOSE : 20 MG , FREQUENCY TIME : 1 DAY
     Dates: start: 20220824, end: 20220825
  2. PAROXETINE [Suspect]
     Active Substance: PAROXETINE
     Dosage: UNIT DOSE : 40 MG , FREQUENCY TIME : 1 DAY , THERAPY END DATE : NASK
     Dates: start: 20220826
  3. QUETIAPINE [Suspect]
     Active Substance: QUETIAPINE
     Indication: Product used for unknown indication
     Dosage: UNIT DOSE : 600 MG , FREQUENCY TIME : 1 DAY
     Dates: start: 20220826, end: 20220829
  4. QUETIAPINE [Suspect]
     Active Substance: QUETIAPINE
     Dosage: UNIT DOSE : 300 MG , FREQUENCY TIME : 1 DAY
     Dates: start: 20220825, end: 20220825
  5. CYAMEMAZINE [Suspect]
     Active Substance: CYAMEMAZINE
     Indication: Product used for unknown indication
     Dosage: UNIT DOSE : 125 GTT , FREQUENCY TIME : 1 DAY , THERAPY END DATE : NASK
     Dates: start: 20220824
  6. RISPERIDONE [Concomitant]
     Active Substance: RISPERIDONE
     Indication: Product used for unknown indication
     Dosage: UNIT DOSE : 1 MG , FREQUENCY TIME : 1 DAY
     Dates: end: 20220825
  7. ZOPICLONE [Concomitant]
     Active Substance: ZOPICLONE
     Indication: Insomnia
     Dosage: UNIT DOSE : 7.5 MG , FREQUENCY TIME : 1 DAY
     Dates: end: 20220825
  8. FLUVOXAMINE MALEATE [Concomitant]
     Active Substance: FLUVOXAMINE MALEATE
     Indication: Mixed anxiety and depressive disorder
     Dosage: UNIT DOSE : 100 MG , FREQUENCY TIME : 1 DAY
     Dates: end: 20220823
  9. HYDROXYZINE HYDROCHLORIDE [Concomitant]
     Active Substance: HYDROXYZINE HYDROCHLORIDE
     Indication: Product used for unknown indication
     Dosage: UNIT DOSE : 25 MG , FREQUENCY TIME : 1 DAY
     Dates: end: 20220823
  10. DIAZEPAM [Concomitant]
     Active Substance: DIAZEPAM
     Indication: Anxiety
     Dosage: UNIT DOSE : 90 GTT  , FREQUENCY TIME : 1 DAY

REACTIONS (1)
  - Hepatic cytolysis [Recovering/Resolving]

NARRATIVE: CASE EVENT DATE: 20220829
